FAERS Safety Report 7694646-5 (Version None)
Quarter: 2011Q3

REPORT INFORMATION
  Report Type: 
  Country: None (occurrence: None)
  Receive Date: 20110816
  Receipt Date: 20110812
  Transmission Date: 20111222
  Serious: Yes (Death)
  Sender: FDA-Public Use
  Company Number: US-001909

PATIENT

DRUGS (1)
  1. KUVAN [Suspect]
     Indication: TETRAHYDROBIOPTERIN DEFICIENCY
     Dosage: 400 MG QD, ORAL
     Route: 048
     Dates: start: 20080408

REACTIONS (1)
  - DEATH [None]
